FAERS Safety Report 6021934-0 (Version None)
Quarter: 2008Q4

REPORT INFORMATION
  Report Type: 
  Country: None (occurrence: None)
  Receive Date: 20081229
  Receipt Date: 20081217
  Transmission Date: 20090506
  Serious: Yes (Other)
  Sender: FDA-Public Use
  Company Number: JP-ROCHE-604889

PATIENT
  Age: 60 Year
  Sex: Male

DRUGS (1)
  1. XELODA [Suspect]
     Indication: RECTAL CANCER
     Dosage: DRUG REPORTED AS XELODA 300
     Route: 048

REACTIONS (2)
  - INTESTINAL OBSTRUCTION [None]
  - SMALL INTESTINE ULCER [None]
